FAERS Safety Report 9571816 (Version 1)
Quarter: 2013Q4

REPORT INFORMATION
  Report Type: Spontaneous
  Country: US (occurrence: US)
  Receive Date: 20131001
  Receipt Date: 20131001
  Transmission Date: 20140711
  Serious: No
  Sender: FDA-Public Use
  Company Number: US-BIOGENIDEC-2013BI066783

PATIENT
  Age: 47 Year
  Sex: Female

DRUGS (13)
  1. TECFIDERA [Suspect]
     Indication: MULTIPLE SCLEROSIS
     Route: 048
     Dates: start: 20130612
  2. TECFIDERA [Suspect]
     Indication: MULTIPLE SCLEROSIS
     Route: 048
     Dates: start: 20130612
  3. PRILOSEC [Concomitant]
  4. VITAMIN D [Concomitant]
  5. SYNTHROID [Concomitant]
  6. ENPRESSE [Concomitant]
  7. NAPROXEN [Concomitant]
  8. BACLOFEN [Concomitant]
  9. VITAMIN B [Concomitant]
  10. GRANBERRY [Concomitant]
  11. PROBIOTIC [Concomitant]
  12. AVONEX [Concomitant]
  13. METFORMIN [Concomitant]

REACTIONS (3)
  - Pruritus [Not Recovered/Not Resolved]
  - Flushing [Recovered/Resolved]
  - Erythema [Not Recovered/Not Resolved]
